FAERS Safety Report 8436040-5 (Version None)
Quarter: 2012Q2

REPORT INFORMATION
  Report Type: 
  Country: None (occurrence: None)
  Receive Date: 20120614
  Receipt Date: 20120530
  Transmission Date: 20120825
  Serious: Yes (Death)
  Sender: FDA-Public Use
  Company Number: DE-ROCHE-1076351

PATIENT
  Sex: Female
  Weight: 63 kg

DRUGS (5)
  1. FLUOROURACIL [Suspect]
     Indication: COLON CANCER METASTATIC
     Route: 042
     Dates: start: 20090720
  2. FLUOROURACIL [Suspect]
     Route: 042
     Dates: start: 20090722
  3. IRINOTECAN HYDROCHLORIDE [Concomitant]
     Indication: COLON CANCER METASTATIC
     Route: 042
     Dates: start: 20090720
  4. LEUCOVORIN CALCIUM [Concomitant]
     Indication: COLON CANCER METASTATIC
     Route: 042
     Dates: start: 20090720
  5. AVASTIN [Suspect]
     Indication: COLON CANCER METASTATIC
     Route: 042
     Dates: start: 20090720

REACTIONS (2)
  - CARDIAC FAILURE [None]
  - PULMONARY EMBOLISM [None]
